FAERS Safety Report 9925853 (Version 2)
Quarter: 2014Q1

REPORT INFORMATION
  Report Type: Report from Study
  Country: US (occurrence: US)
  Receive Date: 20140226
  Receipt Date: 20140307
  Transmission Date: 20141002
  Serious: Yes (Hospitalization, Other)
  Sender: FDA-Public Use
  Company Number: US-ABBVIE-14P-163-1205840-00

PATIENT
  Age: 35 Year
  Sex: Female
  Weight: 118.04 kg

DRUGS (16)
  1. HUMIRA [Suspect]
     Indication: COLITIS ULCERATIVE
     Dates: start: 2008, end: 2013
  2. HUMIRA [Suspect]
     Dosage: ONCE
     Dates: start: 20140122, end: 20140122
  3. HUMIRA [Suspect]
     Dosage: ONCE
     Dates: start: 20140206, end: 20140206
  4. ALIGN [Concomitant]
     Indication: PROBIOTIC THERAPY
  5. LYRICA [Concomitant]
     Indication: NEUROPATHY PERIPHERAL
  6. LYRICA [Concomitant]
     Indication: SYSTEMIC LUPUS ERYTHEMATOSUS
  7. LIALDA [Concomitant]
     Indication: COLITIS ULCERATIVE
  8. POTASSIUM [Concomitant]
     Indication: BLOOD POTASSIUM DECREASED
  9. MULTIVITAMIN [Concomitant]
     Indication: VITAMIN SUPPLEMENTATION
  10. FOLIC ACID [Concomitant]
     Indication: VITAMIN SUPPLEMENTATION
  11. DICYCLOMINE [Concomitant]
     Indication: ABDOMINAL PAIN
  12. PROTONIX [Concomitant]
     Indication: GASTRIC DISORDER
  13. PROTONIX [Concomitant]
     Indication: PROPHYLAXIS
  14. LORAZEPAM [Concomitant]
     Indication: INSOMNIA
  15. AMBIEN [Concomitant]
     Indication: INSOMNIA
  16. IMODIUM [Concomitant]
     Indication: COLITIS ULCERATIVE

REACTIONS (7)
  - Haematochezia [Recovered/Resolved]
  - Wound [Recovering/Resolving]
  - Mouth ulceration [Recovering/Resolving]
  - Colitis ulcerative [Recovered/Resolved]
  - Abdominal pain [Recovered/Resolved]
  - Dehydration [Recovered/Resolved]
  - Behcet^s syndrome [Not Recovered/Not Resolved]
